FAERS Safety Report 6763617-5 (Version None)
Quarter: 2010Q2

REPORT INFORMATION
  Report Type: 
  Country: None (occurrence: None)
  Receive Date: 20100610
  Receipt Date: 20100602
  Transmission Date: 20101027
  Serious: Yes (Hospitalization, Other)
  Sender: FDA-Public Use
  Company Number: PHHO2010CZ08688

PATIENT
  Sex: Male
  Weight: 95 kg

DRUGS (1)
  1. OCTREOTIDE ACETATE [Suspect]
     Indication: ACROMEGALY
     Dosage: UNK
     Route: 030
     Dates: start: 20090602, end: 20091119

REACTIONS (10)
  - ABDOMINAL PAIN UPPER [None]
  - CHOLECYSTECTOMY [None]
  - CHOLECYSTITIS ACUTE [None]
  - CHOLELITHIASIS [None]
  - DILATATION ATRIAL [None]
  - MEDICAL DEVICE REMOVAL [None]
  - MITRAL VALVE INCOMPETENCE [None]
  - NAUSEA [None]
  - PAIN [None]
  - VOMITING [None]
